FAERS Safety Report 7918343 (Version 3)
Quarter: 2014Q3

REPORT INFORMATION
  Report Type: Spontaneous
  Country: FR (occurrence: FR)
  Receive Date: 20110428
  Receipt Date: 20140714
  Transmission Date: 20150326
  Serious: Yes (Life-Threatening, Hospitalization)
  Sender: FDA-Public Use
  Company Number: FR-SANOFI-AVENTIS-2011SA024429

PATIENT
  Age: 29 Year
  Sex: Male

DRUGS (13)
  1. PREDNISOLONE WINTHROP [Suspect]
     Active Substance: PREDNISOLONE
     Indication: ANGINA PECTORIS
     Route: 048
     Dates: start: 20110202, end: 20110206
  2. DOLIPRANE [Suspect]
     Active Substance: ACETAMINOPHEN
     Indication: TORTICOLLIS
     Route: 048
     Dates: start: 20110124, end: 20110131
  3. DOLIPRANE [Suspect]
     Active Substance: ACETAMINOPHEN
     Indication: TORTICOLLIS
     Route: 048
     Dates: start: 20110124, end: 20110131
  4. ZOLPIDEM [Suspect]
     Active Substance: ZOLPIDEM\ZOLPIDEM TARTRATE
     Indication: INSOMNIA
     Route: 048
     Dates: start: 20110202, end: 20110209
  5. TETRAZEPAM WINTHROP [Suspect]
     Active Substance: TETRAZEPAM
     Indication: TORTICOLLIS
     Route: 048
     Dates: start: 20110124, end: 20110128
  6. AMOXICILLINE WINTHROP [Suspect]
     Active Substance: AMOXICILLIN
     Indication: ANGINA PECTORIS
     Route: 048
     Dates: start: 20110202, end: 20110209
  7. AMOXICILLINE WINTHROP [Suspect]
     Active Substance: AMOXICILLIN
     Indication: TONSILLITIS
     Route: 048
     Dates: start: 20110202, end: 20110209
  8. PREDNISOLONE WINTHROP [Suspect]
     Active Substance: PREDNISOLONE
     Indication: OROPHARYNGEAL PAIN
     Route: 048
     Dates: start: 20110202, end: 20110206
  9. AMOXICILLINE WINTHROP [Suspect]
     Active Substance: AMOXICILLIN
     Indication: OROPHARYNGEAL PAIN
     Route: 048
     Dates: start: 20110202, end: 20110209
  10. NAPROXEN. [Suspect]
     Active Substance: NAPROXEN
     Indication: TORTICOLLIS
     Route: 048
     Dates: start: 20110124, end: 20110128
  11. PREDNISOLONE WINTHROP [Suspect]
     Active Substance: PREDNISOLONE
     Indication: TONSILLITIS
     Route: 048
     Dates: start: 20110202, end: 20110206
  12. NAPROXEN. [Suspect]
     Active Substance: NAPROXEN
     Indication: TORTICOLLIS
     Route: 048
     Dates: start: 20110124, end: 20110128
  13. TETRAZEPAM WINTHROP [Suspect]
     Active Substance: TETRAZEPAM
     Indication: TORTICOLLIS
     Route: 048
     Dates: start: 20110124, end: 20110128

REACTIONS (1)
  - Erythema multiforme [Recovered/Resolved with Sequelae]

NARRATIVE: CASE EVENT DATE: 20110130
